FAERS Safety Report 9922880 (Version 2)
Quarter: 2014Q1

REPORT INFORMATION
  Report Type: Spontaneous
  Country: US (occurrence: US)
  Receive Date: 20140225
  Receipt Date: 20140328
  Transmission Date: 20141002
  Serious: Yes (Other)
  Sender: FDA-Public Use
  Company Number: US-FRI-1000054493

PATIENT
  Age: 39 Year
  Sex: Female

DRUGS (5)
  1. FETZIMA [Suspect]
     Indication: DEPRESSION
     Dosage: 20 MG
     Route: 048
     Dates: start: 20140122, end: 20140123
  2. FETZIMA [Suspect]
     Dosage: 40 MG
     Route: 048
     Dates: start: 20140124, end: 20140129
  3. FETZIMA [Suspect]
     Indication: DEPRESSION
     Dosage: 80 MG
     Route: 048
     Dates: start: 20140130, end: 20140130
  4. FETZIMA [Suspect]
     Dosage: 40 MG
     Route: 048
     Dates: start: 20140131, end: 201402
  5. TRAZODONE [Suspect]
     Indication: INSOMNIA
     Dosage: 100 MG AT BEDTIME
     Route: 048
     Dates: start: 20140103, end: 20140218

REACTIONS (4)
  - Pyrexia [Recovered/Resolved]
  - Blood sodium decreased [Recovered/Resolved]
  - Musculoskeletal stiffness [Recovered/Resolved]
  - Nausea [Recovered/Resolved]
